FAERS Safety Report 4521035-4 (Version None)
Quarter: 2004Q4

REPORT INFORMATION
  Report Type: 
  Country: None (occurrence: None)
  Receive Date: 20041208
  Receipt Date: 20041028
  Transmission Date: 20050328
  Serious: Yes (Death)
  Sender: FDA-Public Use
  Company Number: 200418363US

PATIENT
  Age: 86 Year
  Sex: Female
  Weight: 65 kg

DRUGS (14)
  1. LOVENOX [Suspect]
     Indication: ATRIAL FIBRILLATION
     Dates: start: 20040915, end: 20040916
  2. NITROGLYCERIN OINTMENT [Concomitant]
     Dosage: DOSE: 1 INCH
  3. LIPITOR [Concomitant]
  4. SYNTHROID [Concomitant]
     Indication: HYPOTHYROIDISM
  5. MULTI-VITAMINS [Concomitant]
     Dosage: DOSE: UNK
  6. TAMOXIFEN CITRATE [Concomitant]
     Indication: BREAST CANCER
  7. ATENOLOL [Concomitant]
     Indication: HYPERTENSION
  8. AVAPRO [Concomitant]
  9. KCL TAB [Concomitant]
  10. AMIODARONE [Concomitant]
     Indication: ATRIAL FIBRILLATION
  11. KLONOPIN [Concomitant]
  12. NORVASC [Concomitant]
  13. COUMADIN [Concomitant]
     Dosage: DOSE: UNK
     Dates: end: 20040915
  14. ASPIRIN [Concomitant]
     Dates: start: 20040912, end: 20040914

REACTIONS (13)
  - ABDOMINAL DISTENSION [None]
  - ABDOMINAL HAEMATOMA [None]
  - ABDOMINAL PAIN [None]
  - BLOOD BICARBONATE INCREASED [None]
  - BLOOD CHLORIDE DECREASED [None]
  - BLOOD CREATININE INCREASED [None]
  - CARDIO-RESPIRATORY ARREST [None]
  - DRUG INEFFECTIVE [None]
  - HAEMATOCRIT DECREASED [None]
  - HAEMOGLOBIN DECREASED [None]
  - HYPOTENSION [None]
  - IATROGENIC INJURY [None]
  - MEDICATION ERROR [None]
